FAERS Safety Report 20384138 (Version 2)
Quarter: 2022Q1

REPORT INFORMATION
  Report Type: Report from Study
  Country: EG (occurrence: EG)
  Receive Date: 20220127
  Receipt Date: 20220207
  Transmission Date: 20220423
  Serious: Yes (Other)
  Sender: FDA-Public Use
  Company Number: EG-NOVARTISPH-NVSC2022EG017312

PATIENT
  Age: 65 Year
  Sex: Female

DRUGS (23)
  1. AFINITOR [Suspect]
     Active Substance: EVEROLIMUS
     Indication: Breast cancer metastatic
     Dosage: 1 DOSAGE FORM, QD
     Route: 048
     Dates: start: 20220105, end: 20220121
  2. AFINITOR [Suspect]
     Active Substance: EVEROLIMUS
     Indication: Metastases to lymph nodes
     Dosage: 2 DOSAGE FORM, QD
     Route: 048
     Dates: start: 20220121
  3. AROMASIN [Concomitant]
     Active Substance: EXEMESTANE
     Indication: Metastatic lymphoma
     Dosage: 1 DOSAGE FORM, QD
     Route: 065
     Dates: start: 20220105
  4. OSTEOCARE [Concomitant]
     Active Substance: CALCIUM\CHOLECALCIFEROL\MAGNESIUM\ZINC
     Indication: Metastatic lymphoma
     Dosage: 2 DOSAGE FORM, QD
     Route: 065
     Dates: start: 20220105
  5. LIVER ALBUMIN PLUS [Concomitant]
     Indication: Metastatic lymphoma
     Dosage: 1 DOSAGE FORM, TID
     Route: 065
     Dates: start: 20220105
  6. VITAMIN D [Concomitant]
     Active Substance: VITAMIN D NOS
     Indication: Supplementation therapy
     Dosage: 1 DOSAGE FORM, QD
     Route: 065
  7. VITAMIN D [Concomitant]
     Active Substance: VITAMIN D NOS
     Indication: Metastatic lymphoma
  8. OMEGA [Concomitant]
     Indication: Supplementation therapy
     Dosage: 1 DOSAGE FORM, QD
     Route: 065
  9. OMEGA [Concomitant]
     Indication: Metastatic lymphoma
  10. ROYAL JELLY [Concomitant]
     Active Substance: ROYAL JELLY
     Indication: Supplementation therapy
     Dosage: 1 DOSAGE FORM, QD
     Route: 065
  11. ROYAL JELLY [Concomitant]
     Active Substance: ROYAL JELLY
     Indication: Metastatic lymphoma
  12. ZINC [Concomitant]
     Active Substance: ZINC
     Indication: Supplementation therapy
     Dosage: 1 DOSAGE FORM, QD
     Route: 065
  13. ZINC [Concomitant]
     Active Substance: ZINC
     Indication: Metastatic lymphoma
  14. C RETARD [Concomitant]
     Indication: Metastatic lymphoma
     Dosage: 2 DOSAGE FORM, QD
     Route: 065
  15. C RETARD [Concomitant]
     Indication: Supplementation therapy
  16. FEROGLOBIN [Concomitant]
     Indication: Metastatic lymphoma
     Dosage: 1 DOSAGE FORM, QD
     Route: 065
  17. FEROGLOBIN [Concomitant]
     Indication: Supplementation therapy
  18. VITAMIN B [Concomitant]
     Active Substance: VITAMIN B
     Indication: Metastatic lymphoma
     Dosage: 1 DOSAGE FORM, QD
     Route: 065
  19. VITAMIN B [Concomitant]
     Active Substance: VITAMIN B
     Indication: Supplementation therapy
  20. ASPIRIN [Concomitant]
     Active Substance: ASPIRIN
     Indication: Metastatic lymphoma
     Dosage: 2 DOSAGE FORM, QD
     Route: 065
  21. ASPIRIN [Concomitant]
     Active Substance: ASPIRIN
     Indication: Antiplatelet therapy
  22. ORAZONE [Concomitant]
     Indication: Metastatic lymphoma
     Dosage: UNK, TID
     Route: 065
  23. ORAZONE [Concomitant]
     Indication: Mouth ulceration

REACTIONS (3)
  - Dizziness [Not Recovered/Not Resolved]
  - Hypotension [Not Recovered/Not Resolved]
  - Mouth ulceration [Not Recovered/Not Resolved]

NARRATIVE: CASE EVENT DATE: 20220106
